FAERS Safety Report 5535738-6 (Version None)
Quarter: 2007Q4

REPORT INFORMATION
  Report Type: 
  Country: None (occurrence: None)
  Receive Date: 20071204
  Receipt Date: 20071119
  Transmission Date: 20080405
  Serious: Yes (Hospitalization)
  Sender: FDA-Public Use
  Company Number: ALK_00322_2007

PATIENT
  Sex: Female
  Weight: 58.9676 kg

DRUGS (3)
  1. VIVITROL [Suspect]
     Indication: ALCOHOLISM
     Dosage: 380 MG 1X/MONTH INTRAMUSCULAR
     Route: 030
     Dates: start: 20070628, end: 20070701
  2. DIOVAN IC [Concomitant]
  3. PREMARIN [Concomitant]

REACTIONS (8)
  - ALCOHOL USE [None]
  - CELLULITIS [None]
  - HEADACHE [None]
  - INJECTION SITE ABSCESS [None]
  - INJECTION SITE ABSCESS STERILE [None]
  - INJECTION SITE NECROSIS [None]
  - NAUSEA [None]
  - WOUND COMPLICATION [None]
